FAERS Safety Report 8416788-9 (Version None)
Quarter: 2012Q2

REPORT INFORMATION
  Report Type: 
  Country: None (occurrence: None)
  Receive Date: 20120606
  Receipt Date: 20120531
  Transmission Date: 20120825
  Serious: Yes (Hospitalization, Disabling, Other)
  Sender: FDA-Public Use
  Company Number: US-MERCK-1202USA03897

PATIENT
  Age: 52 Year
  Sex: Female
  Weight: 60 kg

DRUGS (8)
  1. FOSAMAX [Suspect]
     Indication: OSTEOPOROSIS
     Route: 048
     Dates: start: 20010813, end: 20060701
  2. FOSAMAX PLUS D [Suspect]
     Indication: OSTEOPOROSIS
     Route: 048
     Dates: start: 20061011, end: 20090807
  3. CALCIUM (UNSPECIFIED) [Concomitant]
     Route: 048
     Dates: start: 19920101
  4. CYANOCOBALAMIN [Concomitant]
     Route: 065
     Dates: start: 19920101
  5. FOSAMAX [Suspect]
     Route: 048
     Dates: start: 20090917, end: 20120101
  6. FOSAMAX [Suspect]
     Route: 048
     Dates: start: 20100913, end: 20110901
  7. ALENDRONATE SODIUM [Suspect]
     Indication: OSTEOPOROSIS
     Route: 048
     Dates: start: 20091023, end: 20100601
  8. CENTRUM (MINERALS (UNSPECIFIED) (+) VITAMINS (UNSPECIFIED)) [Concomitant]
     Route: 048
     Dates: start: 19820101

REACTIONS (22)
  - TRICUSPID VALVE INCOMPETENCE [None]
  - PELVIC PAIN [None]
  - WRIST FRACTURE [None]
  - BLOOD GLUCOSE INCREASED [None]
  - MYOCARDIAL ISCHAEMIA [None]
  - HYPERCHOLESTEROLAEMIA [None]
  - ELECTROCARDIOGRAM POOR R-WAVE PROGRESSION [None]
  - DEVICE FAILURE [None]
  - FALL [None]
  - POSTOPERATIVE FEVER [None]
  - DRUG HYPERSENSITIVITY [None]
  - MITRAL VALVE INCOMPETENCE [None]
  - TOOTH DISORDER [None]
  - IRON DEFICIENCY ANAEMIA [None]
  - LOW TURNOVER OSTEOPATHY [None]
  - FRACTURE DELAYED UNION [None]
  - FEMUR FRACTURE [None]
  - HIP FRACTURE [None]
  - BACK PAIN [None]
  - CONSTIPATION [None]
  - NASAL CONGESTION [None]
  - HAEMORRHAGIC ANAEMIA [None]
